FAERS Safety Report 12126561 (Version 1)
Quarter: 2016Q1

REPORT INFORMATION
  Report Type: Spontaneous
  Country: ZA (occurrence: ZA)
  Receive Date: 20160229
  Receipt Date: 20160229
  Transmission Date: 20160526
  Serious: Yes (Other)
  Sender: FDA-Public Use
  Company Number: ZA-PFIZER INC-2016108482

PATIENT
  Age: 18 Year
  Sex: Female

DRUGS (3)
  1. MIFEGYNE [Suspect]
     Active Substance: MIFEPRISTONE
     Indication: ABORTION INDUCED
     Dosage: 200 MG, UNK (TOTAL)
     Route: 048
     Dates: start: 20150128, end: 20150128
  2. MISOPROSTOL. [Suspect]
     Active Substance: MISOPROSTOL
     Dosage: 800 UG TOTAL BY BUCCAL AND SUBLINGUAL ROUTE
     Route: 060
     Dates: start: 20150130, end: 20150130
  3. MISOPROSTOL. [Suspect]
     Active Substance: MISOPROSTOL
     Indication: ABORTION INDUCED
     Dosage: 800 UG TOTAL BY BUCCAL AND SUBLINGUAL ROUTE
     Route: 002
     Dates: start: 20150130, end: 20150130

REACTIONS (4)
  - Metrorrhagia [Recovered/Resolved]
  - Product use issue [Unknown]
  - Abortion induced incomplete [Recovered/Resolved]
  - Post abortion infection [Recovered/Resolved]

NARRATIVE: CASE EVENT DATE: 201501
